FAERS Safety Report 24208457 (Version 5)
Quarter: 2025Q1

REPORT INFORMATION
  Report Type: Spontaneous
  Country: CA (occurrence: CA)
  Receive Date: 20240814
  Receipt Date: 20250203
  Transmission Date: 20250408
  Serious: Yes (Other)
  Sender: LEO PHARM
  Company Number: CA-LEO Pharma-372625

PATIENT
  Age: 74 Year
  Sex: Female

DRUGS (5)
  1. PROTOPIC [Suspect]
     Active Substance: TACROLIMUS
     Indication: Dermatitis contact
     Route: 003
     Dates: start: 202406, end: 202408
  2. PROTOPIC [Suspect]
     Active Substance: TACROLIMUS
     Indication: Dermatitis atopic
     Route: 003
     Dates: start: 202406, end: 202408
  3. DUPIXENT [Suspect]
     Active Substance: DUPILUMAB
     Indication: Dermatitis contact
  4. unspecified biologic [Concomitant]
     Indication: Dermatitis contact
  5. LOSARTAN [Concomitant]
     Active Substance: LOSARTAN
     Indication: Product used for unknown indication

REACTIONS (12)
  - Joint swelling [Not Recovered/Not Resolved]
  - Skin irritation [Not Recovered/Not Resolved]
  - Herpes zoster [Not Recovered/Not Resolved]
  - Nodule [Not Recovered/Not Resolved]
  - Oral disorder [Not Recovered/Not Resolved]
  - Somnolence [Unknown]
  - Throat irritation [Not Recovered/Not Resolved]
  - Dry mouth [Not Recovered/Not Resolved]
  - Oral herpes [Not Recovered/Not Resolved]
  - Tongue discomfort [Not Recovered/Not Resolved]
  - Fatigue [Not Recovered/Not Resolved]
  - Drug interaction [Unknown]

NARRATIVE: CASE EVENT DATE: 20240801
